FAERS Safety Report 9289150 (Version 1)
Quarter: 2013Q2

REPORT INFORMATION
  Report Type: Spontaneous
  Country: US (occurrence: US)
  Receive Date: 20130514
  Receipt Date: 20130514
  Transmission Date: 20140414
  Serious: Yes (Other)
  Sender: FDA-Public Use
  Company Number: US-ELI_LILLY_AND_COMPANY-US201305001970

PATIENT
  Age: 75 Year
  Sex: Male

DRUGS (3)
  1. HUMALOG LISPRO [Suspect]
     Indication: DIABETES MELLITUS
  2. HUMALOG LISPRO [Suspect]
     Indication: DIABETES MELLITUS
     Dosage: UNK UNK, PRN
  3. LANTUS [Concomitant]
     Dosage: UNK, EACH MORNING

REACTIONS (10)
  - Diabetic coma [Recovered/Resolved]
  - Dyskinesia [Unknown]
  - Muscle twitching [Unknown]
  - Pain in extremity [Not Recovered/Not Resolved]
  - Back disorder [Unknown]
  - Insomnia [Not Recovered/Not Resolved]
  - Blood pressure abnormal [Unknown]
  - Blood pressure decreased [Unknown]
  - Blood glucose decreased [Unknown]
  - Feeling abnormal [Unknown]
